FAERS Safety Report 5336965-3 (Version None)
Quarter: 2007Q2

REPORT INFORMATION
  Report Type: 
  Country: None (occurrence: None)
  Receive Date: 20070529
  Receipt Date: 20070515
  Transmission Date: 20071010
  Serious: Yes (Other)
  Sender: FDA-Public Use
  Company Number: US-ROCHE-497783

PATIENT
  Age: 51 Year
  Sex: Female

DRUGS (5)
  1. PEGASYS [Suspect]
     Route: 065
     Dates: start: 20070514
  2. REBETOL [Suspect]
     Route: 065
     Dates: start: 20070514
  3. LORAZEPAM [Suspect]
     Dosage: THE PATIENT TOOK LORAZEPAM 5 MG AT BEDTIME ON 14 MAY 2007.
     Route: 065
  4. ACIPHEX [Concomitant]
  5. SYNTHROID [Concomitant]

REACTIONS (6)
  - CONFUSIONAL STATE [None]
  - DIZZINESS [None]
  - FALL [None]
  - FATIGUE [None]
  - HEAD INJURY [None]
  - LOSS OF CONSCIOUSNESS [None]
